FAERS Safety Report 24990138 (Version 3)
Quarter: 2025Q3

REPORT INFORMATION
  Report Type: Spontaneous
  Country: JP (occurrence: JP)
  Receive Date: 20250220
  Receipt Date: 20250826
  Transmission Date: 20251021
  Serious: No
  Sender: MERCK SHARP & DOHME LLC
  Company Number: JP-009507513-2256532

PATIENT
  Age: 85 Year
  Sex: Male

DRUGS (5)
  1. LAGEVRIO [Suspect]
     Active Substance: MOLNUPIRAVIR
     Indication: COVID-19
     Route: 048
     Dates: start: 20250211, end: 20250213
  2. ELIQUIS [Concomitant]
     Active Substance: APIXABAN
  3. PRAVASTATIN SODIUM [Concomitant]
     Active Substance: PRAVASTATIN SODIUM
  4. PREDNISOLONE [Concomitant]
     Active Substance: PREDNISOLONE
  5. BONALON [Concomitant]
     Active Substance: ALENDRONATE SODIUM

REACTIONS (2)
  - Accidental overdose [Unknown]
  - Pyrexia [Recovering/Resolving]

NARRATIVE: CASE EVENT DATE: 20250101
